FAERS Safety Report 6453923-6 (Version None)
Quarter: 2009Q4

REPORT INFORMATION
  Report Type: 
  Country: None (occurrence: None)
  Receive Date: 20091124
  Receipt Date: 20091112
  Transmission Date: 20100525
  Serious: Yes (Other)
  Sender: FDA-Public Use
  Company Number: US-BAYER-200939314NA

PATIENT
  Age: 60 Year
  Sex: Male

DRUGS (1)
  1. ULTRAVIST PHARMACY BULK PACKAGE [Suspect]
     Indication: COMPUTERISED TOMOGRAM
     Dosage: VIA POWER INJECTOR AT A RATE OF 2 ML/SECOND VIA THE RIGHT ANTECUBITAL, WARMER USED AT TEMP OF 37.5 C
     Route: 042
     Dates: start: 20091111, end: 20091111

REACTIONS (2)
  - DYSPNOEA [None]
  - HYPERHIDROSIS [None]
